FAERS Safety Report 17425361 (Version 2)
Quarter: 2020Q1

REPORT INFORMATION
  Report Type: Spontaneous
  Country: ES (occurrence: ES)
  Receive Date: 20200217
  Receipt Date: 20200228
  Transmission Date: 20200409
  Serious: Yes (Hospitalization, Other)
  Sender: FDA-Public Use
  Company Number: ES-MACLEODS PHARMACEUTICALS US LTD-MAC2020025166

PATIENT

DRUGS (1)
  1. TRIAMCINOLONE ACETONIDE. [Suspect]
     Active Substance: TRIAMCINOLONE ACETONIDE
     Indication: CHALAZION
     Dosage: 0.5 MILLILITER, 1 TOTAL, INJECTION, TRIGON DEPOT 40 MG/ML, BRISTOL-MYERS SQUIBB
     Route: 050

REACTIONS (2)
  - Detachment of retinal pigment epithelium [Recovered/Resolved]
  - Chorioretinopathy [Recovered/Resolved]
